FAERS Safety Report 5928919-0 (Version None)
Quarter: 2008Q4

REPORT INFORMATION
  Report Type: 
  Country: None (occurrence: None)
  Receive Date: 20081024
  Receipt Date: 20081023
  Transmission Date: 20090506
  Serious: Yes (Death, Hospitalization)
  Sender: FDA-Public Use
  Company Number: PHHO2002ES04329

PATIENT
  Sex: Male

DRUGS (3)
  1. NEORAL [Suspect]
     Indication: LIVER TRANSPLANT
  2. SIMULECT [Suspect]
     Indication: LIVER TRANSPLANT
     Dosage: DAY 0
     Route: 042
     Dates: start: 20020515, end: 20020515
  3. SIMULECT [Suspect]
     Dosage: DAY 4
     Route: 042
     Dates: start: 20020519, end: 20020519

REACTIONS (12)
  - ANAEMIA [None]
  - ANURIA [None]
  - ENCEPHALOPATHY [None]
  - HEPATIC FUNCTION ABNORMAL [None]
  - HYPOVOLAEMIA [None]
  - MULTI-ORGAN FAILURE [None]
  - NECROSIS [None]
  - NEPHROPATHY TOXIC [None]
  - RENAL FAILURE [None]
  - SEPSIS [None]
  - SURGERY [None]
  - WHITE BLOOD CELL DISORDER [None]
